FAERS Safety Report 4708576-1 (Version None)
Quarter: 2005Q3

REPORT INFORMATION
  Report Type: 
  Country: None (occurrence: None)
  Receive Date: 20050705
  Receipt Date: 20050621
  Transmission Date: 20060218
  Serious: Yes (Other)
  Sender: FDA-Public Use
  Company Number: CHPA2005US01741

PATIENT
  Age: 51 Year
  Sex: Female
  Weight: 39.5 kg

DRUGS (1)
  1. TRANSDERM SCOP [Suspect]
     Indication: MOTION SICKNESS
     Dosage: 1.5 MG, ONCE/SINGLE; TRANSDERMAL
     Route: 062
     Dates: start: 20050609, end: 20050610

REACTIONS (7)
  - CEREBROVASCULAR ACCIDENT [None]
  - DIFFICULTY IN WALKING [None]
  - DISORIENTATION [None]
  - HALLUCINATION [None]
  - INCOHERENT [None]
  - LOSS OF CONSCIOUSNESS [None]
  - MEMORY IMPAIRMENT [None]
